FAERS Safety Report 25886636 (Version 1)
Quarter: 2025Q4

REPORT INFORMATION
  Report Type: Spontaneous
  Country: EU (occurrence: EU)
  Receive Date: 20251006
  Receipt Date: 20251006
  Transmission Date: 20260118
  Serious: Yes (Other)
  Sender: SANDOZ
  Company Number: EU-PFIZER INC-PV202500112306

PATIENT
  Age: 45 Year
  Sex: Female

DRUGS (4)
  1. GOSERELIN [Suspect]
     Active Substance: GOSERELIN
     Indication: Product used for unknown indication
     Dosage: 3.8 MG, CYCLIC /28 DAYS
     Route: 065
     Dates: start: 202502
  2. IBRANCE [Suspect]
     Active Substance: PALBOCICLIB
     Indication: Product used for unknown indication
     Dosage: 125 MG, CYCLIC 1-21 EVERY 28 DAYS
     Route: 048
     Dates: start: 202502
  3. LETROZOLE [Suspect]
     Active Substance: LETROZOLE
     Indication: Product used for unknown indication
     Dosage: 2.5 MG, DAILY
     Route: 048
     Dates: start: 202502
  4. ZOLEDRONIC ACID [Suspect]
     Active Substance: ZOLEDRONIC ACID
     Indication: Product used for unknown indication
     Dosage: EVERY 4 WEEKS-3 MONTHS, THEN EVERY 12 WEEKS -UP TO 2 YEARS
     Route: 065
     Dates: start: 202502

REACTIONS (2)
  - Neutropenia [Unknown]
  - Leukopenia [Unknown]
